FAERS Safety Report 4297225-5 (Version None)
Quarter: 2004Q1

REPORT INFORMATION
  Report Type: 
  Country: None (occurrence: None)
  Receive Date: 20040218
  Receipt Date: 20040210
  Transmission Date: 20041129
  Serious: Yes (Hospitalization)
  Sender: FDA-Public Use
  Company Number: PHEH2004US01788

PATIENT
  Sex: Male

DRUGS (1)
  1. CLOZARIL [Suspect]
     Dosage: UNK, UNK
     Route: 048

REACTIONS (7)
  - CATATONIA [None]
  - CONVULSION [None]
  - DECREASED APPETITE [None]
  - DIET REFUSAL [None]
  - FEEDING TUBE INSERTION [None]
  - PNEUMONIA ASPIRATION [None]
  - TREATMENT NONCOMPLIANCE [None]
